FAERS Safety Report 7794522-3 (Version None)
Quarter: 2011Q4

REPORT INFORMATION
  Report Type: 
  Country: None (occurrence: None)
  Receive Date: 20111004
  Receipt Date: 20110921
  Transmission Date: 20120403
  Serious: Yes (Other)
  Sender: FDA-Public Use
  Company Number: US-BAYER-201038924NA

PATIENT
  Age: 38 Year
  Sex: Female
  Weight: 100 kg

DRUGS (6)
  1. ALESSE [Concomitant]
  2. YASMIN [Suspect]
     Indication: MENSTRUAL CYCLE MANAGEMENT
     Dosage: UNK
     Dates: start: 20010101, end: 20060101
  3. SARAFEM [Concomitant]
  4. AUGMENTIN '125' [Concomitant]
  5. YASMIN [Suspect]
     Indication: CONTRACEPTION
     Dosage: UNK
     Route: 048
     Dates: start: 20000101, end: 20060101
  6. FLOVENT [Concomitant]

REACTIONS (11)
  - CHOLECYSTITIS CHRONIC [None]
  - GALLBLADDER DISORDER [None]
  - STRESS [None]
  - ADRENAL INSUFFICIENCY [None]
  - PALPITATIONS [None]
  - HYPERTENSION [None]
  - DEPRESSION [None]
  - LYMPHOMA [None]
  - FLUID RETENTION [None]
  - BILIARY DYSKINESIA [None]
  - NON-HODGKIN'S LYMPHOMA [None]
